FAERS Safety Report 7962710-9 (Version None)
Quarter: 2011Q4

REPORT INFORMATION
  Report Type: 
  Country: None (occurrence: None)
  Receive Date: 20111207
  Receipt Date: 20111202
  Transmission Date: 20120403
  Serious: Yes (Hospitalization)
  Sender: FDA-Public Use
  Company Number: US-ABBOTT-11P-163-0880168-00

PATIENT
  Sex: Female
  Weight: 56.75 kg

DRUGS (16)
  1. TRAZODONE HCL [Concomitant]
     Indication: PRODUCT USED FOR UNKNOWN INDICATION
  2. LORAZEPAM [Concomitant]
     Indication: PRODUCT USED FOR UNKNOWN INDICATION
  3. ASACOL [Concomitant]
     Indication: CROHN'S DISEASE
  4. IMURAN [Concomitant]
     Indication: PRODUCT USED FOR UNKNOWN INDICATION
  5. TEGRETOL [Concomitant]
     Indication: PRODUCT USED FOR UNKNOWN INDICATION
  6. CONCERTA [Concomitant]
     Indication: PRODUCT USED FOR UNKNOWN INDICATION
  7. HUMIRA [Suspect]
     Indication: CROHN'S DISEASE
     Dates: start: 20111020, end: 20111020
  8. HUMIRA [Suspect]
     Dates: start: 20111103, end: 20111103
  9. LIBRAX [Concomitant]
     Indication: ABDOMINAL PAIN
  10. CENESTIN [Concomitant]
     Indication: PRODUCT USED FOR UNKNOWN INDICATION
  11. HUMIRA [Suspect]
     Dates: start: 20111117
  12. MIRALAX [Concomitant]
     Indication: PRODUCT USED FOR UNKNOWN INDICATION
  13. ZEGERID [Concomitant]
     Indication: DYSPEPSIA
  14. LIALDA [Concomitant]
     Indication: CROHN'S DISEASE
  15. ENTOCORT EC [Concomitant]
     Indication: CROHN'S DISEASE
  16. SEROQUEL [Concomitant]
     Indication: PRODUCT USED FOR UNKNOWN INDICATION

REACTIONS (7)
  - RASH [None]
  - ABDOMINAL PAIN [None]
  - RASH PUSTULAR [None]
  - HYPERSOMNIA [None]
  - HERPES ZOSTER DISSEMINATED [None]
  - ASTHENIA [None]
  - RASH GENERALISED [None]
